FAERS Safety Report 13130421 (Version 4)
Quarter: 2017Q1

REPORT INFORMATION
  Report Type: Spontaneous
  Country: IN (occurrence: IN)
  Receive Date: 20170119
  Receipt Date: 20170214
  Transmission Date: 20170428
  Serious: Yes (Hospitalization, Other)
  Sender: FDA-Public Use
  Company Number: IN-PFIZER INC-2017016956

PATIENT
  Age: 50 Year
  Sex: Male

DRUGS (2)
  1. METHYLPREDNISOLONE. [Suspect]
     Active Substance: METHYLPREDNISOLONE
     Indication: RETINAL VEIN OCCLUSION
     Dosage: 1 G, 1X/DAY FOR 3 DAYS
     Route: 042
     Dates: start: 20161219, end: 20161221
  2. OMNACORTIL /00016201/ [Suspect]
     Active Substance: PREDNISOLONE
     Indication: RETINAL VEIN OCCLUSION
     Dosage: 60 MG, FOR 5 DAYS
     Dates: end: 20161224

REACTIONS (4)
  - Rhinitis allergic [Recovered/Resolved]
  - Bronchial hyperreactivity [Recovered/Resolved]
  - Lower respiratory tract infection [Recovered/Resolved]
  - Blood glucose increased [Recovered/Resolved]
